FAERS Safety Report 9861057 (Version 1)
Quarter: 2014Q1

REPORT INFORMATION
  Report Type: Spontaneous
  Country: US (occurrence: None)
  Receive Date: 20140131
  Receipt Date: 20140131
  Transmission Date: 20141002
  Serious: No
  Sender: FDA-Public Use
  Company Number: None

PATIENT
  Age: 55 Year
  Sex: Female
  Weight: 60.33 kg

DRUGS (3)
  1. OXYCODONE [Suspect]
     Indication: NEUROPATHY PERIPHERAL
     Route: 048
     Dates: start: 20131203, end: 20131206
  2. OXYCODONE [Suspect]
     Indication: SURGERY
     Route: 048
     Dates: start: 20131203, end: 20131206
  3. OXYCODONE [Suspect]
     Indication: PAIN
     Route: 048
     Dates: start: 20131203, end: 20131206

REACTIONS (6)
  - Headache [None]
  - Palpitations [None]
  - Nausea [None]
  - Feeling abnormal [None]
  - Drug ineffective [None]
  - Product substitution issue [None]
